FAERS Safety Report 7405596-3 (Version None)
Quarter: 2011Q2

REPORT INFORMATION
  Report Type: 
  Country: None (occurrence: None)
  Receive Date: 20110411
  Receipt Date: 20110329
  Transmission Date: 20111010
  Serious: Yes (Other)
  Sender: FDA-Public Use
  Company Number: PHHY2011BR24368

PATIENT
  Sex: Female
  Weight: 65 kg

DRUGS (5)
  1. EXELON [Suspect]
     Dosage: 9 MG / 5CM2, UNK
     Route: 062
  2. SEROQUEL [Concomitant]
     Indication: MENTAL DISORDER
     Dosage: 5 ML, QD
     Route: 048
     Dates: start: 20101201
  3. FRONTAL [Concomitant]
     Indication: SLEEP DISORDER
     Dosage: 1 TABLET AT NIGHT, UNK
     Route: 048
     Dates: start: 20101201
  4. LORAX [Concomitant]
     Dosage: 2 MG, UNK
     Route: 048
  5. EXELON [Suspect]
     Dosage: 9 MG/5CM^2
     Route: 062
     Dates: start: 20101201

REACTIONS (15)
  - AGGRESSION [None]
  - DEMENTIA [None]
  - STUBBORNNESS [None]
  - FALL [None]
  - HALLUCINATION, VISUAL [None]
  - AGITATION [None]
  - TREMOR [None]
  - WRONG TECHNIQUE IN DRUG USAGE PROCESS [None]
  - DEPRESSION [None]
  - GAIT DISTURBANCE [None]
  - SOMNOLENCE [None]
  - FEELING ABNORMAL [None]
  - HEADACHE [None]
  - BALANCE DISORDER [None]
  - ABNORMAL BEHAVIOUR [None]
